FAERS Safety Report 5802481-5 (Version None)
Quarter: 2008Q2

REPORT INFORMATION
  Report Type: 
  Country: None (occurrence: None)
  Receive Date: 20080630
  Receipt Date: 20080616
  Transmission Date: 20081010
  Serious: Yes (Hospitalization)
  Sender: FDA-Public Use
  Company Number: 2250051-2008-00334

PATIENT
  Age: 31 Year
  Sex: Female

DRUGS (1)
  1. RHOGAM [Suspect]
     Indication: UTERINE DILATION AND CURETTAGE
     Dosage: 300 UG 1X IM
     Route: 030

REACTIONS (2)
  - GUILLAIN-BARRE SYNDROME [None]
  - MUSCULAR WEAKNESS [None]
